FAERS Safety Report 9865436 (Version 1)
Quarter: 2014Q1

REPORT INFORMATION
  Report Type: Spontaneous
  Country: US (occurrence: US)
  Receive Date: 20140203
  Receipt Date: 20140203
  Transmission Date: 20141002
  Serious: No
  Sender: FDA-Public Use
  Company Number: US-ALLERGAN-1307678US

PATIENT
  Age: 53 Year
  Sex: Female

DRUGS (5)
  1. RESTASIS [Suspect]
     Indication: DRY EYE
     Dosage: 2 GTT, BID
     Route: 047
     Dates: start: 2008
  2. RESTASIS [Suspect]
     Dosage: 2 GTT, UNK
     Route: 047
     Dates: start: 2008
  3. REFRESH CELLUVISC SOLUTION [Suspect]
     Indication: DRY EYE
  4. THERATEARS [Concomitant]
     Indication: DRY EYE
     Dosage: 2 GTT, PRN
     Route: 047
  5. DILANTIN                           /00017401/ [Concomitant]
     Indication: EPILEPSY
     Dosage: 300 MG, QD
     Route: 048

REACTIONS (2)
  - Inappropriate schedule of drug administration [Unknown]
  - Eye irritation [Unknown]
